FAERS Safety Report 7527440-6 (Version None)
Quarter: 2011Q2

REPORT INFORMATION
  Report Type: 
  Country: None (occurrence: None)
  Receive Date: 20110603
  Receipt Date: 20110524
  Transmission Date: 20111010
  Serious: Yes (Hospitalization)
  Sender: FDA-Public Use
  Company Number: JPI-P-014416

PATIENT
  Age: 31 Year
  Sex: Male
  Weight: 87.0906 kg

DRUGS (9)
  1. XYREM [Suspect]
     Indication: FATIGUE
     Dosage: SEE IMAGE
     Route: 048
     Dates: start: 20050728, end: 20050101
  2. XYREM [Suspect]
     Indication: CATAPLEXY
     Dosage: SEE IMAGE
     Route: 048
     Dates: start: 20050728, end: 20050101
  3. XYREM [Suspect]
     Indication: FATIGUE
     Dosage: SEE IMAGE
     Route: 048
     Dates: start: 20110301
  4. XYREM [Suspect]
     Indication: CATAPLEXY
     Dosage: SEE IMAGE
     Route: 048
     Dates: start: 20110301
  5. XYREM [Suspect]
     Indication: FATIGUE
     Dosage: SEE IMAGE
     Route: 048
     Dates: start: 20050101, end: 20050101
  6. XYREM [Suspect]
     Indication: CATAPLEXY
     Dosage: SEE IMAGE
     Route: 048
     Dates: start: 20050101, end: 20050101
  7. XYREM [Suspect]
     Indication: FATIGUE
     Dosage: SEE IMAGE
     Route: 048
     Dates: start: 20051230, end: 20110301
  8. XYREM [Suspect]
     Indication: CATAPLEXY
     Dosage: SEE IMAGE
     Route: 048
     Dates: start: 20051230, end: 20110301
  9. ALLERGY MEDICATION [Concomitant]

REACTIONS (3)
  - INSOMNIA [None]
  - INFLUENZA LIKE ILLNESS [None]
  - MENINGITIS VIRAL [None]
